FAERS Safety Report 9435940 (Version 2)
Quarter: 2013Q3

REPORT INFORMATION
  Report Type: Spontaneous
  Country: US (occurrence: US)
  Receive Date: 20130801
  Receipt Date: 20130814
  Transmission Date: 20140515
  Serious: Yes (Life-Threatening)
  Sender: FDA-Public Use
  Company Number: US-ASTRAZENECA-2013SE57792

PATIENT
  Age: 69 Year
  Sex: Male

DRUGS (7)
  1. SEROQUEL [Suspect]
     Route: 048
     Dates: start: 20120907
  2. SEROQUEL [Suspect]
     Route: 048
     Dates: start: 201209
  3. CRESTOR [Concomitant]
     Route: 048
     Dates: start: 20120922
  4. LYRICA [Concomitant]
     Route: 048
     Dates: start: 20120922
  5. HALDOL [Concomitant]
     Indication: AGITATION
     Route: 042
     Dates: start: 20120907
  6. HALDOL [Concomitant]
     Indication: AGITATION
     Route: 042
     Dates: start: 20120907
  7. ATIVAN [Concomitant]

REACTIONS (2)
  - Myocardial infarction [Unknown]
  - Carotid artery stenosis [Unknown]
